FAERS Safety Report 5717822-7 (Version None)
Quarter: 2008Q2

REPORT INFORMATION
  Report Type: 
  Country: None (occurrence: None)
  Receive Date: 20080425
  Receipt Date: 20080423
  Transmission Date: 20081010
  Serious: Yes (Hospitalization)
  Sender: FDA-Public Use
  Company Number: AU-AVENTIS-200811781EU

PATIENT
  Age: 46 Year
  Sex: Female

DRUGS (2)
  1. ENOXAPARIN SODIUM [Suspect]
     Indication: PULMONARY EMBOLISM
     Dates: start: 20080220
  2. WARFARIN SODIUM [Concomitant]

REACTIONS (2)
  - CHEST PAIN [None]
  - INJECTION SITE REACTION [None]
